FAERS Safety Report 10222760 (Version 1)
Quarter: 2014Q2

REPORT INFORMATION
  Report Type: Spontaneous
  Country: US (occurrence: US)
  Receive Date: 20140606
  Receipt Date: 20140606
  Transmission Date: 20141212
  Serious: No
  Sender: FDA-Public Use
  Company Number: US-B.I. PHARMACEUTICALS,INC./RIDGEFIELD-2014-BI-23700BP

PATIENT
  Sex: Male
  Weight: 59 kg

DRUGS (4)
  1. COMBIVENT [Suspect]
     Indication: CHRONIC OBSTRUCTIVE PULMONARY DISEASE
     Dosage: STRENGTH: 18 MCG / 103 MCG
     Route: 055
     Dates: start: 1998, end: 20140521
  2. METOPROLOL [Concomitant]
     Indication: VENTRICULAR TACHYCARDIA
     Dosage: 50 MG
     Route: 048
  3. LOTREL [Concomitant]
     Indication: HYPERTENSION
     Dosage: STRENGTH: 2.5MG/10MG; DAILY DOSE: 2.5MG/10MG
     Route: 048
  4. ASPIRIN [Concomitant]
     Indication: PRODUCT USED FOR UNKNOWN INDICATION
     Route: 048

REACTIONS (2)
  - Pain [Not Recovered/Not Resolved]
  - Muscle spasms [Not Recovered/Not Resolved]
